FAERS Safety Report 10846874 (Version 1)
Quarter: 2015Q1

REPORT INFORMATION
  Report Type: Not Available
  Country: US (occurrence: US)
  Receive Date: 20150220
  Receipt Date: 20150220
  Transmission Date: 20150721
  Serious: No
  Sender: FDA-Public Use
  Company Number: US-AMARIN PHARMA, INC.-2013AMR000012

PATIENT
  Age: 71 Year
  Sex: Male
  Weight: 115.9 kg

DRUGS (6)
  1. VASCEPA [Suspect]
     Active Substance: ETHYL ICOSAPENTATE
     Dates: start: 20130402, end: 20130408
  2. ULORIC [Concomitant]
     Active Substance: FEBUXOSTAT
     Indication: GOUT
  3. STEROID INJECTION [Concomitant]
     Active Substance: UNSPECIFIED INGREDIENT
     Indication: SPINAL COLUMN STENOSIS
  4. VASCEPA [Suspect]
     Active Substance: ETHYL ICOSAPENTATE
     Indication: BLOOD TRIGLYCERIDES INCREASED
     Dates: start: 201301, end: 201301
  5. HYDROCODONE [Concomitant]
     Active Substance: HYDROCODONE
     Indication: SPINAL COLUMN STENOSIS
  6. HYDROCODONE [Concomitant]
     Active Substance: HYDROCODONE

REACTIONS (5)
  - Pain in extremity [Recovered/Resolved]
  - Musculoskeletal stiffness [Recovered/Resolved]
  - Joint range of motion decreased [Recovered/Resolved]
  - Back pain [Recovered/Resolved]
  - Arthralgia [Recovered/Resolved]

NARRATIVE: CASE EVENT DATE: 201301
